FAERS Safety Report 10155402 (Version 4)
Quarter: 2014Q2

REPORT INFORMATION
  Report Type: Spontaneous
  Country: US (occurrence: US)
  Receive Date: 20140506
  Receipt Date: 20140611
  Transmission Date: 20141212
  Serious: Yes (Other)
  Sender: FDA-Public Use
  Company Number: ALCN2014US002695

PATIENT
  Age: 75 Year
  Sex: Female
  Weight: 68.27 kg

DRUGS (5)
  1. BSS [Suspect]
     Indication: INTRAOCULAR LENS IMPLANT
     Dosage: UNK
     Route: 065
     Dates: start: 20140421, end: 20140421
  2. BSS [Suspect]
     Indication: OFF LABEL USE
  3. MIOSTAT [Suspect]
     Indication: INTRAOCULAR LENS IMPLANT
     Dosage: UNK
     Route: 047
     Dates: start: 20140421, end: 20140421
  4. OFLOXACIN [Suspect]
     Indication: INTRAOCULAR LENS IMPLANT
     Dosage: UNK
     Route: 047
     Dates: start: 20140418
  5. BETADINE [Suspect]
     Indication: INTRAOCULAR LENS IMPLANT
     Dosage: UNK
     Route: 047
     Dates: start: 20140421, end: 20140421

REACTIONS (11)
  - Endophthalmitis [Unknown]
  - Visual impairment [Unknown]
  - Vitreous floaters [Unknown]
  - Visual acuity reduced [Unknown]
  - Corneal opacity [Unknown]
  - Eye oedema [Unknown]
  - Wound complication [Unknown]
  - Hypopyon [Unknown]
  - Corneal striae [Unknown]
  - Off label use [Unknown]
  - Corneal abrasion [Unknown]
